FAERS Safety Report 5059308-1 (Version None)
Quarter: 2006Q3

REPORT INFORMATION
  Report Type: 
  Country: None (occurrence: None)
  Receive Date: 20060724
  Receipt Date: 20060713
  Transmission Date: 20061208
  Serious: Yes (Other)
  Sender: FDA-Public Use
  Company Number: SA-JNJFOC-20060703003

PATIENT
  Age: 31 Year
  Sex: Male

DRUGS (3)
  1. REMICADE [Suspect]
  2. REMICADE [Suspect]
     Indication: ANKYLOSING SPONDYLITIS
  3. INDOMETHACIN [Concomitant]
     Indication: ANKYLOSING SPONDYLITIS

REACTIONS (2)
  - POLYARTHRITIS [None]
  - UVEITIS [None]
